FAERS Safety Report 14246755 (Version 1)
Quarter: 2017Q4

REPORT INFORMATION
  Report Type: Spontaneous
  Country: US (occurrence: US)
  Receive Date: 20171204
  Receipt Date: 20171204
  Transmission Date: 20180321
  Serious: No
  Sender: FDA-Public Use
  Company Number: US-PFIZER INC-2017514336

PATIENT
  Age: 47 Year
  Sex: Male
  Weight: 147.42 kg

DRUGS (1)
  1. LYRICA [Suspect]
     Active Substance: PREGABALIN
     Indication: PERIPHERAL NERVE INJURY
     Dosage: UNK

REACTIONS (3)
  - Road traffic accident [Unknown]
  - Nerve injury [Unknown]
  - Fall [Unknown]
